FAERS Safety Report 9159601 (Version 2)
Quarter: 2013Q1

REPORT INFORMATION
  Report Type: Report from Study
  Country: US (occurrence: US)
  Receive Date: 20130313
  Receipt Date: 20130322
  Transmission Date: 20140127
  Serious: Yes (Death, Hospitalization)
  Sender: FDA-Public Use
  Company Number: US-UCBSA-080406

PATIENT
  Age: 66 Year
  Sex: Male
  Weight: 70.3 kg

DRUGS (9)
  1. CIMZIA [Suspect]
     Indication: CROHN^S DISEASE
     Route: 058
     Dates: start: 20120928, end: 20130104
  2. CALCIUM W/MAGNESIUM [Concomitant]
     Route: 048
  3. CHOLECALCIFEROL [Concomitant]
     Dosage: DOSE:20000 UNITS PER WEEK
     Route: 048
  4. RUBIMIN [Concomitant]
     Dosage: DOSE : 1000 MCG/ML
     Route: 023
     Dates: start: 20120914
  5. TERIPARATIDE [Concomitant]
     Route: 023
  6. PENICILLIN V [Concomitant]
     Route: 048
  7. PREDNISONE [Concomitant]
     Indication: CROHN^S DISEASE
     Route: 048
     Dates: start: 20120917, end: 20130118
  8. PREDNISONE [Concomitant]
     Indication: CROHN^S DISEASE
     Dosage: DOSE : 20 MG
     Route: 048
     Dates: start: 20130119
  9. MESALAMINE [Concomitant]
     Indication: CROHN^S DISEASE
     Dates: start: 20050506

REACTIONS (1)
  - Colitis ischaemic [Fatal]
